FAERS Safety Report 12318778 (Version 1)
Quarter: 2016Q2

REPORT INFORMATION
  Report Type: Spontaneous
  Country: US (occurrence: US)
  Receive Date: 20160429
  Receipt Date: 20160429
  Transmission Date: 20160815
  Serious: Yes (Hospitalization)
  Sender: FDA-Public Use
  Company Number: US-BAYER-2016-077060

PATIENT
  Age: 46 Year
  Sex: Female
  Weight: 89.8 kg

DRUGS (1)
  1. MIRENA [Suspect]
     Active Substance: LEVONORGESTREL
     Indication: MENORRHAGIA
     Dosage: 20 MCG/24HR, CONT
     Route: 015
     Dates: start: 20111229, end: 20150403

REACTIONS (2)
  - Uterine perforation [None]
  - Injury [None]

NARRATIVE: CASE EVENT DATE: 20150330
